FAERS Safety Report 13906450 (Version 2)
Quarter: 2020Q3

REPORT INFORMATION
  Report Type: Spontaneous
  Country: US (occurrence: US)
  Receive Date: 20170825
  Receipt Date: 20200903
  Transmission Date: 20201102
  Serious: No
  Sender: FDA-Public Use
  Company Number: US-HERON THERAPEUTICS, INC-HRTX-2017-000174

PATIENT
  Sex: Female

DRUGS (1)
  1. SUSTOL [Suspect]
     Active Substance: GRANISETRON

REACTIONS (2)
  - Skin laceration [Unknown]
  - Occupational exposure to product [Unknown]

NARRATIVE: CASE EVENT DATE: 20170515
